FAERS Safety Report 11509883 (Version 1)
Quarter: 2015Q3

REPORT INFORMATION
  Report Type: Spontaneous
  Country: US (occurrence: US)
  Receive Date: 20150915
  Receipt Date: 20150915
  Transmission Date: 20151125
  Serious: No
  Sender: FDA-Public Use
  Company Number: US-JNJFOC-20150423580

PATIENT

DRUGS (3)
  1. NAPROXEN SODIUM. [Suspect]
     Active Substance: NAPROXEN SODIUM
     Indication: PROCEDURAL PAIN
     Route: 065
  2. IBUPROFEN. [Suspect]
     Active Substance: IBUPROFEN
     Indication: PROCEDURAL PAIN
     Route: 065
  3. IBUPROFEN. [Suspect]
     Active Substance: IBUPROFEN
     Indication: PROCEDURAL PAIN
     Route: 065

REACTIONS (2)
  - Therapeutic response unexpected [Unknown]
  - Off label use [Unknown]
